FAERS Safety Report 10284337 (Version 1)
Quarter: 2014Q3

REPORT INFORMATION
  Report Type: Spontaneous
  Country: CN (occurrence: None)
  Receive Date: 20140703
  Receipt Date: 20140703
  Transmission Date: 20150326
  Serious: Yes (Other)
  Sender: FDA-Public Use
  Company Number: B1006866A

PATIENT
  Sex: Female

DRUGS (3)
  1. ALOE [Suspect]
     Active Substance: ALOE
     Indication: CONSTIPATION
     Route: 048
  2. PAROXETINE HYDROCHLORIDE TABLET (PAROXETINE HYDROCHLORIDE) [Suspect]
     Active Substance: PAROXETINE HYDROCHLORIDE
     Indication: DEPRESSION
     Dosage: 1 TABLET/ PER DAY/ ORAL
     Route: 048
     Dates: start: 2006
  3. CHINESE MEDICATION [Concomitant]
     Active Substance: UNSPECIFIED INGREDIENT

REACTIONS (5)
  - Helicobacter infection [None]
  - Constipation [None]
  - Inappropriate schedule of drug administration [None]
  - Diarrhoea [None]
  - Gastrointestinal disorder [None]

NARRATIVE: CASE EVENT DATE: 2010
